FAERS Safety Report 21998062 (Version 2)
Quarter: 2023Q1

REPORT INFORMATION
  Report Type: Other
  Country: US (occurrence: None)
  Receive Date: 20230216
  Receipt Date: 20230308
  Transmission Date: 20230418
  Serious: Yes (Other)
  Sender: FDA-Public Use
  Company Number: US-ROCHE-3284457

PATIENT
  Age: 77 Year
  Sex: Female

DRUGS (19)
  1. CELLCEPT [Suspect]
     Active Substance: MYCOPHENOLATE MOFETIL
     Indication: Idiopathic pulmonary fibrosis
     Dosage: 1 CAPSULE EVERY MORNING, 1 CAPSULE EVERY EVENING
     Route: 065
  2. CELLCEPT [Suspect]
     Active Substance: MYCOPHENOLATE MOFETIL
     Indication: Asthma
  3. FAMOTIDINE [Concomitant]
     Active Substance: FAMOTIDINE
  4. IPRATROPIUM [Concomitant]
     Active Substance: IPRATROPIUM
     Dosage: 0.5-3 (2.5) MG/3 MI 0.5 MG-3 MG (2.5 MG BASE)/3 MI, TAKE 1 EVERY 4-6 HOURS
  5. ALBUTEROL [Concomitant]
     Active Substance: ALBUTEROL
     Dosage: 0.5-3 (2.5) MG/3 MI 0.5 MG-3 MG (2.5 MG BASE)/3 MI, TAKE 1 EVERY 4-6 HOURS
  6. PREDNISONE [Concomitant]
     Active Substance: PREDNISONE
     Dosage: 1 TABLET
     Route: 048
  7. BUDESONIDE [Concomitant]
     Active Substance: BUDESONIDE
     Dosage: TWICE A DAY WITH NEB, 0.5 MG/2 MI SUSP,
  8. BUDESONIDE [Concomitant]
     Active Substance: BUDESONIDE
     Dosage: INHALE 1 VIAL VIA NEBUALIZER TWICE DAILY
  9. TESSALON [Concomitant]
     Active Substance: BENZONATATE
     Dosage: 1 CAPSULE
     Route: 048
  10. COMBIVENT RESPIMAT [Concomitant]
     Active Substance: ALBUTEROL SULFATE\IPRATROPIUM BROMIDE
     Dosage: INHALE 1 PUFF EVERY 4-6 HOURS, 20-100 MCG/ACUTATION
  11. ALBUTEROL SULFATE [Concomitant]
     Active Substance: ALBUTEROL SULFATE
     Dosage: 90 MCG INHALER MCG/ACUTATION, INHALE 1 PUFF BY MOUTH EVERY 4 TO 6 HOURS AS NEEDED
     Route: 048
  12. LEVAQUIN [Concomitant]
     Active Substance: LEVOFLOXACIN
  13. OMEPRAZOLE [Concomitant]
     Active Substance: OMEPRAZOLE
     Dosage: TAKE 1 CAPSULE
     Route: 048
  14. STIOLTO RESPIMAT [Concomitant]
     Active Substance: OLODATEROL HYDROCHLORIDE\TIOTROPIUM BROMIDE MONOHYDRATE
     Dosage: INHAL SPRAY 2.5-2.5 MCG/ACUTATION, INHALE 1-2 PUFF ONCE A DAY
  15. VENTOLIN HFA [Concomitant]
     Active Substance: ALBUTEROL SULFATE
     Dosage: 90 MCG INHALER MCG/ACUTATION, INHALE 1 PUFF EVERY 4-6 HOURS AS NEEDED
  16. FERROUS SULFATE [Concomitant]
     Active Substance: FERROUS SULFATE
     Dosage: 65 MG IRON
  17. METFORMIN [Concomitant]
     Active Substance: METFORMIN HYDROCHLORIDE
  18. OYSCO [Concomitant]
     Dosage: 500-VIT D3 200 TABLET, 500 MG - 5 MCG (200 UNIT)
  19. SIMVASTATIN [Concomitant]
     Active Substance: SIMVASTATIN

REACTIONS (11)
  - Diabetes mellitus [Unknown]
  - Off label use [Unknown]
  - Chest discomfort [Unknown]
  - Wheezing [Unknown]
  - Tachypnoea [Unknown]
  - Dry skin [Unknown]
  - Weight decreased [Unknown]
  - Decreased appetite [Unknown]
  - Cough [Unknown]
  - Gastrooesophageal reflux disease [Unknown]
  - Dyspnoea [Unknown]
